FAERS Safety Report 7716008-4 (Version None)
Quarter: 2011Q3

REPORT INFORMATION
  Report Type: 
  Country: None (occurrence: None)
  Receive Date: 20110822
  Receipt Date: 20110810
  Transmission Date: 20111222
  Serious: Yes (Hospitalization, Other)
  Sender: FDA-Public Use
  Company Number: GER/SPN/11/0019160

PATIENT
  Age: 44 Year
  Sex: Male

DRUGS (6)
  1. ASPIRIN [Concomitant]
  2. RAMIPRIL [Concomitant]
  3. CARVEDILOL [Concomitant]
  4. ENOXAPARIN SODIUM [Suspect]
     Dosage: 80 MG, SUBCUTANEOUS
     Route: 058
  5. ATORVASTATIN [Concomitant]
  6. CLOPIDOGREL [Suspect]
     Dosage: 300 MG   75 MG, 1 IN 1 D

REACTIONS (12)
  - CORONARY ARTERY THROMBOSIS [None]
  - DRUG RESISTANCE [None]
  - VENTRICULAR HYPOKINESIA [None]
  - COLITIS ULCERATIVE [None]
  - MYOCARDIAL ISCHAEMIA [None]
  - EPISTAXIS [None]
  - HAEMATOCRIT DECREASED [None]
  - CONDITION AGGRAVATED [None]
  - CORONARY ARTERY OCCLUSION [None]
  - THROMBOSIS IN DEVICE [None]
  - HAEMODYNAMIC INSTABILITY [None]
  - HYPOTENSION [None]
